FAERS Safety Report 9552364 (Version 1)
Quarter: 2013Q3

REPORT INFORMATION
  Report Type: Spontaneous
  Country: US (occurrence: None)
  Receive Date: 20130724
  Receipt Date: 20130724
  Transmission Date: 20140515
  Serious: Yes (Hospitalization)
  Sender: FDA-Public Use
  Company Number: PHEH2013US007893

PATIENT
  Age: 82 Year
  Sex: Male

DRUGS (13)
  1. DIOVAN HCT [Suspect]
  2. CRESTOR (ROSUVASTATIN CALCIUM) [Concomitant]
  3. BABY ASPIRIN (ACETYLSALICYLIC ACID) [Concomitant]
  4. LORATIDINE [Concomitant]
  5. REQUIP (ROPINIROLE HYDROCHLORIDE) [Concomitant]
  6. METANX (CALCIUM MEFOLINATE, PYRIDOXINE HYDROCHLORIDE, VITAMIN B12 NOS) [Concomitant]
  7. SYNTHROID (LEVOTHYROXINE SODIUM) [Concomitant]
  8. CENTRUM SILVER (ASCORBIC ACID, CALCIUM, MINERALS NOS, RETINOL, TOCOPHERYL ACETATE, VITAMIN B NOS, VITAMINS NOS, ZINC) [Concomitant]
  9. FAMOTIDINE (FAMOTIDINE) [Concomitant]
  10. VITAMIN B COMPLEX (VITAMIN B COMPLEX) [Concomitant]
  11. CALCIFEROL (ERGOCALCIFEROL) [Concomitant]
  12. TUMS (CALCIUM CARBONATE) [Concomitant]
  13. METOPROLOL (METOPROLOL) [Concomitant]

REACTIONS (2)
  - Dehydration [None]
  - Dizziness [None]
